FAERS Safety Report 5253750-1 (Version None)
Quarter: 2007Q1

REPORT INFORMATION
  Report Type: 
  Country: None (occurrence: None)
  Receive Date: 20070227
  Receipt Date: 20070213
  Transmission Date: 20070707
  Serious: Yes (Hospitalization)
  Sender: FDA-Public Use
  Company Number: 2007BI000337

PATIENT
  Age: 49 Year
  Sex: Female

DRUGS (2)
  1. NATALIZUMAB [Suspect]
     Indication: MULTIPLE SCLEROSIS
     Dosage: 30 MG;QM; IV
     Route: 042
     Dates: start: 20061019
  2. AVONEX [Concomitant]

REACTIONS (4)
  - CELLULITIS [None]
  - DECUBITUS ULCER [None]
  - STAPHYLOCOCCAL INFECTION [None]
  - VASCULITIS [None]
